FAERS Safety Report 5786248-2 (Version None)
Quarter: 2008Q2

REPORT INFORMATION
  Report Type: 
  Country: None (occurrence: None)
  Receive Date: 20080624
  Receipt Date: 20080611
  Transmission Date: 20081010
  Serious: Yes (Hospitalization)
  Sender: FDA-Public Use
  Company Number: NZ-ELI_LILLY_AND_COMPANY-NZ200806003219

PATIENT
  Age: 35 Year
  Sex: Male

DRUGS (1)
  1. PROZAC [Suspect]
     Dosage: 20 MG, UNK
     Dates: start: 20020401, end: 20020401

REACTIONS (4)
  - AGITATION [None]
  - HYPERHIDROSIS [None]
  - MUSCLE TWITCHING [None]
  - SUICIDAL IDEATION [None]
